FAERS Safety Report 25002674 (Version 2)
Quarter: 2025Q1

REPORT INFORMATION
  Report Type: Report from Study
  Country: BR (occurrence: BR)
  Receive Date: 20250224
  Receipt Date: 20250312
  Transmission Date: 20250409
  Serious: Yes (Hospitalization)
  Sender: JOHNSON AND JOHNSON
  Company Number: BR-JNJFOC-20241289435

PATIENT
  Age: 79 Year
  Sex: Male
  Weight: 64.2 kg

DRUGS (8)
  1. ZYTIGA [Suspect]
     Active Substance: ABIRATERONE ACETATE
     Indication: Prostate cancer
     Dosage: LAST DOSE WAS ADMINISTERED PRIOR TO SAE ON 05-NOV-2024
     Route: 048
     Dates: start: 20230516
  2. ABEMACICLIB [Suspect]
     Active Substance: ABEMACICLIB
     Indication: Prostate cancer
     Route: 065
     Dates: start: 20230516
  3. PREDNISONE [Suspect]
     Active Substance: PREDNISONE
     Indication: Prostate cancer
     Dosage: LAST DOSE WAS ADMINISTERED PRIOR TO SAE ON 05-NOV-2024
     Route: 048
     Dates: start: 20230516
  4. CARVEDILOL [Concomitant]
     Active Substance: CARVEDILOL
     Dates: start: 202202
  5. AMLODIPINE [Concomitant]
     Active Substance: AMLODIPINE BESYLATE
     Dates: start: 202202
  6. OMEPRAZOLE [Concomitant]
     Active Substance: OMEPRAZOLE
     Dates: start: 202302
  7. SIMVASTATIN [Concomitant]
     Active Substance: SIMVASTATIN
     Dates: start: 20240416
  8. AMOXICILLIN\CLAVULANATE POTASSIUM [Concomitant]
     Active Substance: AMOXICILLIN\CLAVULANATE POTASSIUM
     Dates: start: 20240221

REACTIONS (1)
  - Cellulitis [Recovered/Resolved]
